FAERS Safety Report 13138389 (Version 1)
Quarter: 2017Q1

REPORT INFORMATION
  Report Type: Spontaneous
  Country: US (occurrence: US)
  Receive Date: 20170123
  Receipt Date: 20170123
  Transmission Date: 20170428
  Serious: Yes (Death)
  Sender: FDA-Public Use
  Company Number: None

PATIENT
  Age: 55 Year
  Sex: Male
  Weight: 113.5 kg

DRUGS (1)
  1. DALTEPARIN 12,500 IU [Suspect]
     Active Substance: DALTEPARIN
     Indication: PULMONARY EMBOLISM
     Route: 058
     Dates: start: 20161222, end: 20170118

REACTIONS (1)
  - Death [None]

NARRATIVE: CASE EVENT DATE: 20170122
